FAERS Safety Report 4269275-6 (Version None)
Quarter: 2004Q1

REPORT INFORMATION
  Report Type: 
  Country: None (occurrence: None)
  Receive Date: 20040109
  Receipt Date: 20031229
  Transmission Date: 20041129
  Serious: Yes (Death, Hospitalization)
  Sender: FDA-Public Use
  Company Number: 2003119625

PATIENT
  Age: 77 Year
  Sex: Female

DRUGS (5)
  1. ZOLOFT [Suspect]
     Indication: DEPRESSION
     Dosage: 100 MG (DAILY), ORAL
     Route: 048
     Dates: start: 20030524, end: 20030605
  2. HYDROCHLOROTHIAZIDE [Suspect]
     Indication: HYPERTENSION
     Dosage: 12.5 MG (DAILY),ORAL
     Route: 048
     Dates: start: 20030527, end: 20030625
  3. LORAZEPAM [Suspect]
     Indication: ILL-DEFINED DISORDER
     Dosage: 0.5 MG (DAILY), ORAL
     Route: 048
     Dates: start: 20030602, end: 20030714
  4. ZOPICLONE (ZOPICLONE) [Concomitant]
  5. KREON ORAL (PANCREATIN) [Concomitant]

REACTIONS (7)
  - BLOOD OSMOLARITY DECREASED [None]
  - COLON CANCER [None]
  - HYPOKALAEMIA [None]
  - HYPONATRAEMIA [None]
  - INAPPROPRIATE ANTIDIURETIC HORMONE SECRETION [None]
  - INTESTINAL PERFORATION [None]
  - PROCEDURAL COMPLICATION [None]
